FAERS Safety Report 18865248 (Version 2)
Quarter: 2021Q1

REPORT INFORMATION
  Report Type: Spontaneous
  Country: TR (occurrence: TR)
  Receive Date: 20210208
  Receipt Date: 20210219
  Transmission Date: 20210420
  Serious: Yes (Hospitalization, Other)
  Sender: FDA-Public Use
  Company Number: TR-PFIZER INC-2021120173

PATIENT
  Age: 63 Year
  Sex: Male

DRUGS (1)
  1. SILDENAFIL CITRATE. [Suspect]
     Active Substance: SILDENAFIL CITRATE
     Indication: ERECTILE DYSFUNCTION
     Dosage: UNK (AT LEAST THREE TIMES A WEEK FOR MORE THAN FIVE YEARS)

REACTIONS (1)
  - Cerebral venous sinus thrombosis [Recovered/Resolved]
